FAERS Safety Report 7429111-3 (Version None)
Quarter: 2011Q2

REPORT INFORMATION
  Report Type: 
  Country: None (occurrence: None)
  Receive Date: 20110421
  Receipt Date: 20110408
  Transmission Date: 20111010
  Serious: Yes (Hospitalization, Other)
  Sender: FDA-Public Use
  Company Number: PHHY2011FR27089

PATIENT
  Age: 76 Year
  Sex: Male
  Weight: 76 kg

DRUGS (5)
  1. SYMBICORT [Concomitant]
     Indication: CHRONIC OBSTRUCTIVE PULMONARY DISEASE
     Dosage: UNK
     Dates: start: 20100801
  2. LYRICA [Concomitant]
     Dosage: 100 UNK, BID
     Dates: start: 20080101
  3. CALCITONIN-SALMON [Concomitant]
     Indication: HYPERCALCAEMIA
     Dosage: 100 UNK, QD
     Dates: start: 20100810, end: 20100815
  4. ZOMETA [Suspect]
     Indication: HYPERCALCAEMIA OF MALIGNANCY
     Dosage: 4 MG, UNK
     Dates: start: 20080101
  5. CASODEX [Concomitant]
     Dosage: 50 UNK, QD
     Dates: start: 20080101

REACTIONS (16)
  - EXOSTOSIS [None]
  - BACTERIAL INFECTION [None]
  - INFLAMMATORY PAIN [None]
  - NODULE [None]
  - OSTEITIS [None]
  - ERYTHEMA [None]
  - LYMPHADENOPATHY [None]
  - NEOPLASM MALIGNANT [None]
  - OSTEOSCLEROSIS [None]
  - BONE DISORDER [None]
  - PAIN [None]
  - APHAGIA [None]
  - OSTEONECROSIS OF JAW [None]
  - TENDERNESS [None]
  - SWELLING [None]
  - SAPHO SYNDROME [None]
